FAERS Safety Report 7668481-8 (Version None)
Quarter: 2011Q3

REPORT INFORMATION
  Report Type: 
  Country: None (occurrence: None)
  Receive Date: 20110808
  Receipt Date: 20110727
  Transmission Date: 20111222
  Serious: Yes (Hospitalization)
  Sender: FDA-Public Use
  Company Number: AU-ELI_LILLY_AND_COMPANY-AU201108000010

PATIENT
  Sex: Male

DRUGS (6)
  1. CARBOPLATIN [Suspect]
     Indication: NON-SMALL CELL LUNG CANCER
     Dosage: 5 AUC, EVERY 3 WEEKS
     Route: 042
     Dates: start: 20090204
  2. COLOXYL [Concomitant]
     Dosage: UNK
     Dates: start: 20090325
  3. GEMCITABINE HYDROCHLORIDE [Suspect]
     Indication: NON-SMALL CELL LUNG CANCER
     Dosage: 2100 MG, 1 + 8 PER 21 DAY
     Route: 042
     Dates: start: 20090204
  4. BEVACIZUMAB [Suspect]
     Indication: NON-SMALL CELL LUNG CANCER
     Dosage: 1000 MG, EVERY 3 WEEKS
     Route: 042
     Dates: start: 20090204
  5. NAVOBAN [Concomitant]
     Dosage: UNK
     Dates: start: 20090408, end: 20090408
  6. DEXAMETHASONE [Concomitant]
     Dosage: UNK
     Dates: start: 20090408, end: 20090408

REACTIONS (1)
  - INFECTION [None]
